FAERS Safety Report 25163174 (Version 1)
Quarter: 2025Q2

REPORT INFORMATION
  Report Type: Spontaneous
  Country: US (occurrence: US)
  Receive Date: 20250404
  Receipt Date: 20250404
  Transmission Date: 20250716
  Serious: No
  Sender: Kenvue
  Company Number: US-KENVUE-20250303596

PATIENT
  Age: 64 Year
  Sex: Female

DRUGS (6)
  1. TYLENOL 8 HR ARTHRITIS PAIN [Suspect]
     Active Substance: ACETAMINOPHEN
     Indication: Product used for unknown indication
     Route: 065
     Dates: start: 20250306, end: 20250306
  2. TYLENOL [Concomitant]
     Active Substance: ACETAMINOPHEN
     Indication: Malaise
     Route: 065
     Dates: start: 20250306
  3. TYLENOL [Concomitant]
     Active Substance: ACETAMINOPHEN
     Indication: Asthenia
  4. TYLENOL [Concomitant]
     Active Substance: ACETAMINOPHEN
     Indication: Lethargy
  5. TYLENOL [Concomitant]
     Active Substance: ACETAMINOPHEN
     Indication: Somnolence
  6. TYLENOL [Concomitant]
     Active Substance: ACETAMINOPHEN
     Indication: Pain

REACTIONS (3)
  - Lethargy [Recovering/Resolving]
  - Nausea [Recovering/Resolving]
  - Asthenia [Recovering/Resolving]

NARRATIVE: CASE EVENT DATE: 20250306
